FAERS Safety Report 25153413 (Version 3)
Quarter: 2025Q2

REPORT INFORMATION
  Report Type: Spontaneous
  Country: FR (occurrence: FR)
  Receive Date: 20250403
  Receipt Date: 20250611
  Transmission Date: 20250717
  Serious: Yes (Other)
  Sender: ALEXION PHARMACEUTICALS
  Company Number: FR-AstraZeneca-CH-00838396A

PATIENT
  Age: 64 Year
  Weight: 90 kg

DRUGS (4)
  1. DAPAGLIFLOZIN [Suspect]
     Active Substance: DAPAGLIFLOZIN
     Indication: Chronic kidney disease
     Dosage: 10 MILLIGRAM, QD
  2. FENOFIBRATE [Concomitant]
     Active Substance: FENOFIBRATE
  3. CIALIS [Concomitant]
     Active Substance: TADALAFIL
  4. TELMISARTAN [Concomitant]
     Active Substance: TELMISARTAN

REACTIONS (3)
  - Urinary tract infection [Unknown]
  - Balanoposthitis [Unknown]
  - Penile scarring [Unknown]
